FAERS Safety Report 6325968-8 (Version None)
Quarter: 2009Q3

REPORT INFORMATION
  Report Type: 
  Country: None (occurrence: None)
  Receive Date: 20090824
  Receipt Date: 20090812
  Transmission Date: 20100115
  Serious: Yes (Death)
  Sender: FDA-Public Use
  Company Number: DE-CVT-090501

PATIENT

DRUGS (8)
  1. RANEXA [Suspect]
     Indication: ANGINA PECTORIS
     Dosage: 750 MG, QD
     Route: 048
     Dates: start: 20090605, end: 20090614
  2. DIOVAN                             /01319601/ [Concomitant]
     Dosage: 160 MG, QD
  3. DILATREND [Concomitant]
     Dosage: 25 MG, QD
     Route: 048
  4. UNAT                               /01036501/ [Concomitant]
     Dosage: 20 MG, QD
     Route: 048
  5. LOCOL [Concomitant]
     Dosage: 80 MG, QD
     Route: 048
  6. OSYROL                             /00006201/ [Concomitant]
     Dosage: 50 MG, QD
     Route: 048
  7. INSULIN GLULISINE [Concomitant]
     Dosage: 1088 IU, QD
     Route: 058
  8. LANTUS [Concomitant]
     Dosage: 20 IU, QD
     Route: 058

REACTIONS (1)
  - DEATH [None]
